FAERS Safety Report 7631099-7 (Version None)
Quarter: 2011Q3

REPORT INFORMATION
  Report Type: 
  Country: None (occurrence: None)
  Receive Date: 20110725
  Receipt Date: 20101112
  Transmission Date: 20111222
  Serious: No
  Sender: FDA-Public Use
  Company Number: US-BAYER-2011-002644

PATIENT
  Age: 52 Year
  Sex: Female
  Weight: 63.492 kg

DRUGS (1)
  1. BETASERON [Suspect]

REACTIONS (1)
  - HYPERSENSITIVITY [None]
